FAERS Safety Report 19434618 (Version 1)
Quarter: 2021Q2

REPORT INFORMATION
  Report Type: Spontaneous
  Country: US (occurrence: US)
  Receive Date: 20210617
  Receipt Date: 20210617
  Transmission Date: 20210717
  Serious: No
  Sender: FDA-Public Use
  Company Number: US-ROCHE-2668103

PATIENT
  Sex: Female

DRUGS (13)
  1. ALLOPURINOL. [Concomitant]
     Active Substance: ALLOPURINOL
  2. WARFARIN SODIUM. [Concomitant]
     Active Substance: WARFARIN SODIUM
  3. ACTEMRA [Suspect]
     Active Substance: TOCILIZUMAB
  4. FUROSEMIDE. [Concomitant]
     Active Substance: FUROSEMIDE
  5. GABAPENTIN. [Concomitant]
     Active Substance: GABAPENTIN
  6. METOPROLOL SUCCINATE ER [Concomitant]
     Active Substance: METOPROLOL SUCCINATE
  7. POTASSIUM CHLORIDE ER [Concomitant]
     Active Substance: POTASSIUM CHLORIDE
  8. ACTEMRA [Suspect]
     Active Substance: TOCILIZUMAB
     Indication: GIANT CELL ARTERITIS
     Dosage: ONGOING: YES
     Route: 058
     Dates: start: 20200314
  9. LEVOTHYROXINE SODIUM. [Concomitant]
     Active Substance: LEVOTHYROXINE SODIUM
  10. PRAVASTINE [Concomitant]
     Active Substance: PRAVASTATIN SODIUM
  11. VITAMIN D2 [Concomitant]
     Active Substance: ERGOCALCIFEROL
  12. ACTEMRA [Suspect]
     Active Substance: TOCILIZUMAB
  13. TRADJENTA [Concomitant]
     Active Substance: LINAGLIPTIN

REACTIONS (2)
  - No adverse event [Unknown]
  - Drug ineffective [Unknown]
